FAERS Safety Report 17424668 (Version 1)
Quarter: 2020Q1

REPORT INFORMATION
  Report Type: Spontaneous
  Country: US (occurrence: US)
  Receive Date: 20200217
  Receipt Date: 20200217
  Transmission Date: 20200409
  Serious: Yes (Hospitalization, Other)
  Sender: FDA-Public Use
  Company Number: US-GLAXOSMITHKLINE-US2020AMR024032

PATIENT
  Sex: Female

DRUGS (1)
  1. SORIATANE [Suspect]
     Active Substance: ACITRETIN
     Indication: PRODUCT USED FOR UNKNOWN INDICATION
     Dosage: 25 MG
     Route: 065
     Dates: start: 2016

REACTIONS (5)
  - Skin cancer [Unknown]
  - Cyst [Unknown]
  - Leg amputation [Unknown]
  - Immunodeficiency [Unknown]
  - Metastases to bone [Unknown]

NARRATIVE: CASE EVENT DATE: 2016
